FAERS Safety Report 6046147-8 (Version None)
Quarter: 2009Q1

REPORT INFORMATION
  Report Type: 
  Country: None (occurrence: None)
  Receive Date: 20090121
  Receipt Date: 20090121
  Transmission Date: 20090719
  Serious: No
  Sender: FDA-Public Use
  Company Number: None

PATIENT
  Age: 46 Year
  Sex: Male
  Weight: 87.54 kg

DRUGS (1)
  1. VENLAFAXINE HCL [Suspect]
     Indication: PAIN
     Dosage: 37.5 MG AM PO
     Route: 048
     Dates: start: 20081204, end: 20090103

REACTIONS (2)
  - IRRITABILITY [None]
  - NIGHTMARE [None]
